FAERS Safety Report 9971785 (Version 1)
Quarter: 2013Q3

REPORT INFORMATION
  Report Type: Spontaneous
  Country: US (occurrence: None)
  Receive Date: 20130919
  Receipt Date: 20130919
  Transmission Date: 20140515
  Serious: Yes (Life-Threatening)
  Sender: FDA-Public Use
  Company Number: QR71221-03

PATIENT
  Age: 59 Year
  Sex: Male
  Weight: 29.3 kg

DRUGS (7)
  1. GAMMAPLEX IMMUNE [Suspect]
     Indication: SECONDARY IMMUNODEFICIENCY
     Route: 042
     Dates: start: 20130611
  2. THYROXINE [Concomitant]
  3. AZITHROMYCIN [Concomitant]
  4. PREDNISOLONE [Concomitant]
  5. BISPHOSPHENATES [Concomitant]
  6. SERETIDE INHALER [Concomitant]
  7. DIABETES THERAPY AS NOVARAPID AND GLARGINE [Concomitant]

REACTIONS (6)
  - Chills [None]
  - Blood pressure immeasurable [None]
  - Body temperature increased [None]
  - Ear infection [None]
  - Blood culture positive [None]
  - Stenotrophomonas test positive [None]
